FAERS Safety Report 5307154-3 (Version None)
Quarter: 2007Q2

REPORT INFORMATION
  Report Type: 
  Country: None (occurrence: None)
  Receive Date: 20070425
  Receipt Date: 20070119
  Transmission Date: 20071010
  Serious: No
  Sender: FDA-Public Use
  Company Number: US-AMGEN-US207769

PATIENT
  Sex: Female
  Weight: 44.9 kg

DRUGS (7)
  1. VECTIBIX [Suspect]
     Indication: COLORECTAL CANCER
     Route: 065
     Dates: start: 20061109
  2. ZOCOR [Concomitant]
     Route: 065
  3. PLAVIX [Concomitant]
     Route: 065
  4. ATIVAN [Concomitant]
     Route: 065
  5. CLONIDINE [Concomitant]
     Route: 065
  6. VITAMIN CAP [Concomitant]
     Route: 065
  7. CALCIUM [Concomitant]

REACTIONS (5)
  - ACNE [None]
  - ASTHENIA [None]
  - DIZZINESS [None]
  - PRURITUS [None]
  - WEIGHT DECREASED [None]
